FAERS Safety Report 11694197 (Version 3)
Quarter: 2015Q4

REPORT INFORMATION
  Report Type: Spontaneous
  Country: US (occurrence: US)
  Receive Date: 20151103
  Receipt Date: 20151230
  Transmission Date: 20160304
  Serious: Yes (Other)
  Sender: FDA-Public Use
  Company Number: US-BAYER-2015-451910

PATIENT
  Age: 59 Year
  Sex: Male
  Weight: 76.19 kg

DRUGS (10)
  1. CYMBALTA [Suspect]
     Active Substance: DULOXETINE HYDROCHLORIDE
     Indication: DEPRESSION
     Dosage: UNK
  2. OMEPRAZOLE. [Concomitant]
     Active Substance: OMEPRAZOLE
     Indication: GASTROOESOPHAGEAL REFLUX DISEASE
     Dosage: UNK
  3. LYRICA [Suspect]
     Active Substance: PREGABALIN
     Indication: NERVE INJURY
     Dosage: 150 MG, QID
  4. LYRICA [Suspect]
     Active Substance: PREGABALIN
     Indication: PROSTATE INFECTION
     Dosage: 150 MG, TID
  5. AMITRIPTYLINE HCL [Suspect]
     Active Substance: AMITRIPTYLINE
     Dosage: 25 MG, QD
  6. CIPRO [Suspect]
     Active Substance: CIPROFLOXACIN HYDROCHLORIDE
     Indication: PROSTATE INFECTION
     Dosage: 500 MG, BID
     Route: 048
     Dates: start: 2006, end: 2006
  7. LYRICA [Suspect]
     Active Substance: PREGABALIN
     Indication: NERVE INJURY
     Dosage: 150 MG, BID
     Route: 048
     Dates: start: 200704
  8. MIRTAZAPINE. [Concomitant]
     Active Substance: MIRTAZAPINE
     Indication: DEPRESSION
     Dosage: UNK
  9. GABAPENTIN. [Suspect]
     Active Substance: GABAPENTIN
     Dosage: UNK
  10. FLOMAX [Concomitant]
     Active Substance: TAMSULOSIN HYDROCHLORIDE
     Dosage: EVERY DAY

REACTIONS (52)
  - Movement disorder [None]
  - Neuralgia [None]
  - Impaired work ability [None]
  - Pain [None]
  - Muscular weakness [None]
  - Dry mouth [None]
  - Irritability [None]
  - Depressed mood [None]
  - Fatigue [None]
  - Libido decreased [None]
  - Back pain [None]
  - Psychomotor hyperactivity [None]
  - Bone pain [None]
  - Burning sensation [None]
  - Myalgia [None]
  - Nervousness [None]
  - Ejaculation disorder [None]
  - Social problem [None]
  - Drug ineffective [None]
  - Genital disorder male [None]
  - Genital pain [None]
  - Arthralgia [None]
  - Weight increased [None]
  - Balance disorder [None]
  - Asthenia [None]
  - Sleep apnoea syndrome [None]
  - Spinal pain [None]
  - Mental fatigue [None]
  - Erectile dysfunction [None]
  - Musculoskeletal stiffness [None]
  - Product use issue [None]
  - Somnolence [None]
  - Anxiety [None]
  - Analgesic therapy [None]
  - Therapeutic response unexpected [None]
  - Coordination abnormal [None]
  - Depression [None]
  - Sleep disorder [None]
  - Sexual dysfunction [None]
  - Nerve injury [None]
  - Disturbance in attention [None]
  - Helplessness [None]
  - General physical health deterioration [None]
  - Hypoglycaemia [None]
  - Body mass index increased [None]
  - Groin pain [None]
  - Dyspnoea [None]
  - Wheezing [None]
  - Insomnia [None]
  - Weight decreased [None]
  - Neck pain [None]
  - Constipation [None]
